FAERS Safety Report 12111878 (Version 1)
Quarter: 2016Q1

REPORT INFORMATION
  Report Type: Spontaneous
  Country: PK (occurrence: PK)
  Receive Date: 20160224
  Receipt Date: 20160224
  Transmission Date: 20160526
  Serious: Yes (Other)
  Sender: FDA-Public Use
  Company Number: PK-ROCHE-1714593

PATIENT
  Age: 57 Year
  Sex: Female

DRUGS (5)
  1. BONVIVA [Suspect]
     Active Substance: IBANDRONATE SODIUM
     Indication: ARTHRALGIA
     Route: 042
     Dates: start: 20151117
  2. ENBREL [Concomitant]
     Active Substance: ETANERCEPT
     Dosage: 1/2 TAB
     Route: 048
     Dates: start: 2006
  3. RENITEC [Concomitant]
     Active Substance: ENALAPRIL MALEATE
     Dosage: 1 TAB
     Route: 048
     Dates: start: 2006
  4. BONVIVA [Suspect]
     Active Substance: IBANDRONATE SODIUM
     Route: 042
     Dates: start: 20160218
  5. GLUCOPHAGE [Concomitant]
     Active Substance: METFORMIN HYDROCHLORIDE
     Indication: DIABETES MELLITUS
     Dosage: 1 TABLET
     Route: 048
     Dates: start: 2004

REACTIONS (1)
  - Pain [Recovered/Resolved]

NARRATIVE: CASE EVENT DATE: 20160218
